FAERS Safety Report 6938788-8 (Version None)
Quarter: 2010Q3

REPORT INFORMATION
  Report Type: 
  Country: None (occurrence: None)
  Receive Date: 20100824
  Receipt Date: 20100820
  Transmission Date: 20110219
  Serious: Yes (Death, Hospitalization)
  Sender: FDA-Public Use
  Company Number: NL-ROCHE-710868

PATIENT
  Sex: Male

DRUGS (15)
  1. BEVACIZUMAB [Suspect]
     Dosage: DATE OF LAST CYCLE: 25 MAY 2010, CYCLE: 2
     Route: 017
     Dates: start: 20100503
  2. CAPECITABINE [Suspect]
     Dosage: DAILY DOSE: 2X1300MG, CYCLE:2, DATE OF LAST CYCLE: 15 MAY 2010
     Route: 048
     Dates: start: 20100503
  3. OXALIPLATIN [Suspect]
     Dosage: DATE OF LAST CYCLE: 25 MAY 2010, CYCLE:2
     Route: 042
     Dates: start: 20100503
  4. NEXIUM [Concomitant]
     Dosage: DOSE: 1X140MG
  5. AMLODIPINE [Concomitant]
     Dosage: DOSE: 1X10MG
  6. DICLOFENAC [Concomitant]
     Dosage: DOSE: 2X100MG
  7. OXYCONTIN [Concomitant]
     Dosage: DOSE: 3X30MG
  8. OXYCODONE HCL [Concomitant]
     Dosage: DOSE: 6X10 MG
  9. PARACETAMOL [Concomitant]
     Dosage: DOSE: 500MG 3X2
  10. PARACETAMOL [Concomitant]
     Dosage: DOSE: 4X1GRAM
  11. MELOXICAM [Concomitant]
  12. LORAZEPAM [Concomitant]
     Dosage: DOSE: 1 MG WHEN NECESSARY.
  13. FENTANYL CITRATE [Concomitant]
  14. ORAMORPH SR [Concomitant]
  15. MOVICOLON [Concomitant]
     Dosage: DOSE: 1X1.

REACTIONS (1)
  - INTESTINAL OBSTRUCTION [None]
